FAERS Safety Report 17035828 (Version 1)
Quarter: 2019Q4

REPORT INFORMATION
  Report Type: Spontaneous
  Country: US (occurrence: US)
  Receive Date: 20191114
  Receipt Date: 20191114
  Transmission Date: 20200122
  Serious: Yes (Hospitalization)
  Sender: FDA-Public Use
  Company Number: None

PATIENT
  Age: 58 Year
  Sex: Female

DRUGS (10)
  1. HUMIRA [Suspect]
     Active Substance: ADALIMUMAB
     Indication: RHEUMATOID ARTHRITIS
     Dosage: ?          OTHER FREQUENCY:EVERY 2 WEEKS;?
     Route: 058
  2. ONDANSETRON [Concomitant]
     Active Substance: ONDANSETRON
  3. ESTRADIOL. [Concomitant]
     Active Substance: ESTRADIOL
  4. SUMATRIPTAN. [Concomitant]
     Active Substance: SUMATRIPTAN
  5. NADOLOL. [Concomitant]
     Active Substance: NADOLOL
  6. SPIRONOLACTONE. [Concomitant]
     Active Substance: SPIRONOLACTONE
  7. VALACYCLOVIR [Concomitant]
     Active Substance: VALACYCLOVIR HYDROCHLORIDE
  8. HYDROCHLOROTHIAZIDE. [Concomitant]
     Active Substance: HYDROCHLOROTHIAZIDE
  9. METHOTREXATE. [Concomitant]
     Active Substance: METHOTREXATE
  10. OXYCODONE [Concomitant]
     Active Substance: OXYCODONE

REACTIONS (1)
  - Shoulder operation [None]
